FAERS Safety Report 5532738-7 (Version None)
Quarter: 2007Q4

REPORT INFORMATION
  Report Type: 
  Country: None (occurrence: None)
  Receive Date: 20071204
  Receipt Date: 20071129
  Transmission Date: 20080405
  Serious: Yes (Death)
  Sender: FDA-Public Use
  Company Number: PHBS2007NL15652

PATIENT
  Age: 85 Year
  Sex: Female
  Weight: 46 kg

DRUGS (8)
  1. EXELON [Suspect]
     Indication: DEMENTIA ALZHEIMER'S TYPE
     Dosage: 3 MG, BID
     Route: 048
     Dates: start: 20061026
  2. PARACETAMOL [Concomitant]
     Dosage: 500 MG, QID
     Route: 065
     Dates: start: 20060101
  3. OXAZEPAM [Concomitant]
     Dosage: 10 MG, QD
     Route: 065
     Dates: start: 20060101
  4. MONO-CEDOCARD [Concomitant]
     Dosage: 25 MG, QD
     Route: 065
     Dates: start: 20060101
  5. MOVICOLON [Concomitant]
     Dosage: 2 DF, QD
     Route: 065
     Dates: start: 20061001
  6. HALOPERIDOL [Concomitant]
     Dosage: 1 MG, QD
     Route: 065
     Dates: start: 20070101
  7. ARTHROTEC [Suspect]
     Indication: BACK PAIN
     Dosage: 50 MG, BID
     Route: 065
     Dates: start: 20070301
  8. ACETYLSALICYLIC ACID SRT [Suspect]
     Indication: TRANSIENT ISCHAEMIC ATTACK
     Dosage: 80 MG, QD
     Route: 065
     Dates: start: 20020101

REACTIONS (2)
  - GASTRIC HAEMORRHAGE [None]
  - HAEMATEMESIS [None]
